FAERS Safety Report 10167604 (Version 2)
Quarter: 2014Q3

REPORT INFORMATION
  Report Type: Spontaneous
  Country: US (occurrence: CA)
  Receive Date: 20140512
  Receipt Date: 20140909
  Transmission Date: 20150326
  Serious: Yes (Death)
  Sender: FDA-Public Use
  Company Number: CA-FRI-1000067244

PATIENT
  Age: 59 Year
  Sex: Male
  Weight: 85.7 kg

DRUGS (20)
  1. PMS GABAPENTIN [Concomitant]
     Dosage: 300 MG
  2. HYDROMORPH [Concomitant]
     Active Substance: HYDROMORPHONE
     Dosage: 12 MG
  3. SENOKOT [Concomitant]
     Active Substance: SENNOSIDES
     Dosage: 8.6 MG
  4. PREDNISONE. [Concomitant]
     Active Substance: PREDNISONE
     Dosage: 5 MG
  5. ASPIRIN. [Concomitant]
     Active Substance: ASPIRIN
     Dosage: 81 MG
  6. APO-QUININE [Concomitant]
     Active Substance: QUININE
     Dosage: 200 MG
  7. APA-IPRAVENT [Concomitant]
  8. APO INDOMETHACIN [Concomitant]
     Dosage: 50 MG
  9. TYLENOL WITH CODEINE [Concomitant]
     Active Substance: ACETAMINOPHEN\CODEINE PHOSPHATE
     Dosage: 30 MG
  10. PMS METHYLPHENIDATE [Concomitant]
     Dosage: 10 MG
  11. APO OMEPRAZOLE [Concomitant]
     Dosage: 20 MG
  12. RHOXAL-BISOPROLOL [Concomitant]
     Dosage: 5 MG
  13. FUROSEMIDE. [Concomitant]
     Active Substance: FUROSEMIDE
     Dosage: 20 MG
  14. VENTOLIN [Concomitant]
     Active Substance: ALBUTEROL SULFATE
  15. CRESTOR [Concomitant]
     Active Substance: ROSUVASTATIN CALCIUM
     Dosage: 10 MG
  16. COVERSYL [Concomitant]
     Active Substance: PERINDOPRIL
     Dosage: 4 MG
  17. QUETIAPINE [Concomitant]
     Active Substance: QUETIAPINE
  18. ROFLUMILAST [Suspect]
     Active Substance: ROFLUMILAST
     Indication: CHRONIC OBSTRUCTIVE PULMONARY DISEASE
     Dosage: 500 MCG
     Dates: start: 2012, end: 20140506
  19. SPIRIVA [Concomitant]
     Active Substance: TIOTROPIUM BROMIDE MONOHYDRATE
  20. ADVAIR HFA [Concomitant]
     Active Substance: FLUTICASONE PROPIONATE\SALMETEROL XINAFOATE

REACTIONS (2)
  - Cardiac arrest [Fatal]
  - Respiratory arrest [Fatal]

NARRATIVE: CASE EVENT DATE: 20140506
